FAERS Safety Report 18248992 (Version 3)
Quarter: 2021Q1

REPORT INFORMATION
  Report Type: Other
  Country: CA (occurrence: CA)
  Receive Date: 20200909
  Receipt Date: 20210205
  Transmission Date: 20210419
  Serious: Yes (Other)
  Sender: FDA-Public Use
  Company Number: CA-CELLTRION INC.-2020CA025761

PATIENT

DRUGS (33)
  1. AMLODIPINE BESILATE [Suspect]
     Active Substance: AMLODIPINE BESYLATE
     Dosage: 5 MILLIGRAM, 1 EVERY 1 DAY
     Route: 048
  2. HYDROXYCHLOROQUINE SULFATE. [Suspect]
     Active Substance: HYDROXYCHLOROQUINE SULFATE
     Indication: PRODUCT USED FOR UNKNOWN INDICATION
     Route: 065
  3. ORENCIA [Suspect]
     Active Substance: ABATACEPT
     Indication: RHEUMATOID ARTHRITIS
     Route: 042
  4. ACETAMINOPHEN. [Concomitant]
     Active Substance: ACETAMINOPHEN
     Indication: PREMEDICATION
     Dosage: 650 MILLIGRAM
     Route: 048
  5. DEPO?MEDROL [Concomitant]
     Active Substance: METHYLPREDNISOLONE ACETATE
     Indication: RHEUMATOID ARTHRITIS
     Dosage: 120 MILLIGRAM
     Route: 014
  6. ROSUVASTATIN CALCIUM. [Concomitant]
     Active Substance: ROSUVASTATIN CALCIUM
     Dosage: UNK
     Route: 065
  7. DIAMICRON [Suspect]
     Active Substance: GLICLAZIDE
     Indication: DIABETES MELLITUS
     Route: 065
  8. ENBREL [Suspect]
     Active Substance: ETANERCEPT
     Indication: RHEUMATOID ARTHRITIS
     Dosage: 50 MILLIGRAM
     Route: 058
  9. SIMPONI [Suspect]
     Active Substance: GOLIMUMAB
     Indication: RHEUMATOID ARTHRITIS
     Route: 058
  10. ATACAND PLUS [Concomitant]
     Active Substance: CANDESARTAN CILEXETIL\HYDROCHLOROTHIAZIDE
     Indication: PRODUCT USED FOR UNKNOWN INDICATION
     Route: 065
  11. FERROUS GLUCONATE [Concomitant]
     Active Substance: FERROUS GLUCONATE
     Indication: PRODUCT USED FOR UNKNOWN INDICATION
     Dosage: 30.0 MILLIGRAM
     Route: 048
  12. MESALAZINE [Suspect]
     Active Substance: MESALAMINE
     Indication: PRODUCT USED FOR UNKNOWN INDICATION
     Dosage: 800 MILLIGRAM, 3 EVERY 1 DAY
     Route: 048
  13. LEFLUNOMIDE. [Suspect]
     Active Substance: LEFLUNOMIDE
     Indication: PRODUCT USED FOR UNKNOWN INDICATION
     Route: 065
  14. REMICADE [Suspect]
     Active Substance: INFLIXIMAB
     Indication: RHEUMATOID ARTHRITIS
     Dosage: UNK
     Route: 042
  15. HYDROXYCHLOROQUINE SULFATE. [Suspect]
     Active Substance: HYDROXYCHLOROQUINE SULFATE
     Indication: PRODUCT USED FOR UNKNOWN INDICATION
     Route: 065
  16. TYLENOL [Concomitant]
     Active Substance: ACETAMINOPHEN
     Indication: PRODUCT USED FOR UNKNOWN INDICATION
     Dosage: 500.0 MILLIGRAM
     Route: 065
  17. RITUXIMAB (UNKNOWN) [Suspect]
     Active Substance: RITUXIMAB
     Indication: RHEUMATOID ARTHRITIS
     Dosage: 1000 MILLIGRAM
     Route: 042
  18. RITUXIMAB (UNKNOWN) [Suspect]
     Active Substance: RITUXIMAB
     Dosage: 1000 MILLIGRAM
     Route: 042
  19. ACTEMRA [Suspect]
     Active Substance: TOCILIZUMAB
     Indication: RHEUMATOID ARTHRITIS
     Route: 065
  20. ASACOL [Suspect]
     Active Substance: MESALAMINE
     Indication: PRODUCT USED FOR UNKNOWN INDICATION
     Dosage: 800 MILLIGRAM, 3 EVERY 1 DAY
     Route: 065
  21. GLICLAZIDE [Suspect]
     Active Substance: GLICLAZIDE
     Indication: DIABETES MELLITUS
     Route: 065
  22. METHOTREXATE. [Suspect]
     Active Substance: METHOTREXATE
     Indication: RHEUMATOID ARTHRITIS
     Dosage: 25 MILLIGRAM, 1 EVERY 1 WEEK
     Route: 058
  23. BISOPROLOL FUMARATE. [Concomitant]
     Active Substance: BISOPROLOL FUMARATE
     Indication: PRODUCT USED FOR UNKNOWN INDICATION
     Dosage: 2.5 MILLIGRAM
     Route: 048
  24. FOLIC ACID. [Concomitant]
     Active Substance: FOLIC ACID
     Indication: PRODUCT USED FOR UNKNOWN INDICATION
     Dosage: 5.0 MILLIGRAM
     Route: 048
  25. ROSUVASTATIN CALCIUM. [Concomitant]
     Active Substance: ROSUVASTATIN CALCIUM
     Indication: PRODUCT USED FOR UNKNOWN INDICATION
     Dosage: UNK
     Route: 065
  26. VITAMIN D3 [Concomitant]
     Active Substance: CHOLECALCIFEROL
     Indication: PRODUCT USED FOR UNKNOWN INDICATION
     Dosage: UNK, 1 EVERY 1 DAY
     Route: 065
  27. AMLODIPINE BESILATE [Suspect]
     Active Substance: AMLODIPINE BESYLATE
     Indication: PRODUCT USED FOR UNKNOWN INDICATION
     Dosage: UNK, 1 EVERY 1 DAY
     Route: 048
  28. AMLODIPINE BESILATE [Suspect]
     Active Substance: AMLODIPINE BESYLATE
     Dosage: UNK
     Route: 065
  29. XELJANZ [Suspect]
     Active Substance: TOFACITINIB CITRATE
     Indication: PRODUCT USED FOR UNKNOWN INDICATION
     Route: 065
  30. DIPHENHYDRAMINE. [Concomitant]
     Active Substance: DIPHENHYDRAMINE
     Indication: PREMEDICATION
     Dosage: 50 MILLIGRAM
     Route: 048
  31. HUMIRA [Suspect]
     Active Substance: ADALIMUMAB
     Indication: PRODUCT USED FOR UNKNOWN INDICATION
     Route: 058
  32. EBASTINE [Concomitant]
     Active Substance: EBASTINE
     Indication: PRODUCT USED FOR UNKNOWN INDICATION
     Route: 065
  33. METHYLPREDNISOLONE. [Concomitant]
     Active Substance: METHYLPREDNISOLONE
     Indication: PREMEDICATION
     Dosage: 100 MILLIGRAM
     Route: 042

REACTIONS (24)
  - Diabetes mellitus inadequate control [Not Recovered/Not Resolved]
  - Musculoskeletal stiffness [Not Recovered/Not Resolved]
  - Weight decreased [Not Recovered/Not Resolved]
  - Hypertension [Not Recovered/Not Resolved]
  - Drug ineffective [Not Recovered/Not Resolved]
  - Peripheral swelling [Not Recovered/Not Resolved]
  - Weight increased [Not Recovered/Not Resolved]
  - Blood pressure increased [Not Recovered/Not Resolved]
  - Haematochezia [Not Recovered/Not Resolved]
  - Joint swelling [Not Recovered/Not Resolved]
  - Dental caries [Not Recovered/Not Resolved]
  - Pain in extremity [Not Recovered/Not Resolved]
  - Condition aggravated [Not Recovered/Not Resolved]
  - Colitis [Not Recovered/Not Resolved]
  - Arthralgia [Not Recovered/Not Resolved]
  - Gastrointestinal disorder [Not Recovered/Not Resolved]
  - Nausea [Not Recovered/Not Resolved]
  - C-reactive protein decreased [Not Recovered/Not Resolved]
  - Vitamin D deficiency [Not Recovered/Not Resolved]
  - Rheumatoid arthritis [Not Recovered/Not Resolved]
  - Drug intolerance [Not Recovered/Not Resolved]
  - Blood pressure fluctuation [Not Recovered/Not Resolved]
  - Drug hypersensitivity [Not Recovered/Not Resolved]
  - Off label use [Not Recovered/Not Resolved]
